FAERS Safety Report 6812776-4 (Version None)
Quarter: 2010Q3

REPORT INFORMATION
  Report Type: 
  Country: None (occurrence: None)
  Receive Date: 20100701
  Receipt Date: 20100622
  Transmission Date: 20110219
  Serious: Yes (Life-Threatening)
  Sender: FDA-Public Use
  Company Number: B0657129A

PATIENT
  Sex: Female

DRUGS (4)
  1. NIMBEX [Suspect]
     Route: 042
     Dates: start: 20100415, end: 20100415
  2. AUGMENTIN '125' [Suspect]
     Indication: PROPHYLAXIS
     Route: 042
     Dates: start: 20100415, end: 20100415
  3. DIPRIVAN [Concomitant]
     Route: 065
     Dates: start: 20100415, end: 20100416
  4. SUFENTA PRESERVATIVE FREE [Concomitant]
     Route: 065
     Dates: start: 20100415, end: 20100416

REACTIONS (4)
  - BRONCHOSPASM [None]
  - HYPOTENSION [None]
  - OXYGEN SATURATION DECREASED [None]
  - RASH GENERALISED [None]
